FAERS Safety Report 13189070 (Version 2)
Quarter: 2017Q1

REPORT INFORMATION
  Report Type: Report from Study
  Country: US (occurrence: US)
  Receive Date: 20170206
  Receipt Date: 20170206
  Transmission Date: 20170428
  Serious: Yes (Other)
  Sender: FDA-Public Use
  Company Number: US-PFIZER INC-2016573393

PATIENT
  Age: 83 Year
  Sex: Female

DRUGS (4)
  1. IBRANCE [Suspect]
     Active Substance: PALBOCICLIB
     Dosage: 125 MG, ALTERNATE DAY [EVERY OTHER DAY]
     Route: 048
  2. IBRANCE [Suspect]
     Active Substance: PALBOCICLIB
     Indication: BREAST CANCER
     Dosage: 125 MG, CYCLIC (DAILY FOR DAY 1-DAY 21 FOLLOWED BY 7 DAYS OFF TO COMPLETE A CYCLE OF 28 DAYS)
     Route: 048
     Dates: start: 20161128
  3. IBRANCE [Suspect]
     Active Substance: PALBOCICLIB
     Dosage: 125 MG, CYCLIC (D1-21 Q 28 D)
     Route: 048
     Dates: start: 201611
  4. FEMARA [Concomitant]
     Active Substance: LETROZOLE
     Indication: BREAST CANCER FEMALE
     Dosage: UNK UNK, DAILY
     Route: 048

REACTIONS (4)
  - Fatigue [Not Recovered/Not Resolved]
  - Pancytopenia [Unknown]
  - White blood cell count decreased [Unknown]
  - Drug dose omission [Unknown]
